FAERS Safety Report 23817797 (Version 1)
Quarter: 2024Q2

REPORT INFORMATION
  Report Type: Spontaneous
  Country: US (occurrence: US)
  Receive Date: 20240506
  Receipt Date: 20240506
  Transmission Date: 20240716
  Serious: No
  Sender: FDA-Public Use
  Company Number: US-LEO Pharma-369935

PATIENT
  Sex: Female

DRUGS (1)
  1. CALCIPOTRIENE [Suspect]
     Active Substance: CALCIPOTRIENE
     Indication: Psoriasis
     Dosage: CREAM 0.005%
     Route: 003
     Dates: start: 20240409, end: 20240423

REACTIONS (3)
  - Paraesthesia oral [Not Recovered/Not Resolved]
  - Rash [Not Recovered/Not Resolved]
  - Product administered at inappropriate site [Unknown]
